FAERS Safety Report 7052020-9 (Version None)
Quarter: 2010Q4

REPORT INFORMATION
  Report Type: 
  Country: None (occurrence: None)
  Receive Date: 20101018
  Receipt Date: 20101018
  Transmission Date: 20110411
  Serious: Yes (Hospitalization)
  Sender: FDA-Public Use
  Company Number: None

PATIENT
  Sex: Female
  Weight: 88.9 kg

DRUGS (1)
  1. SPRINTEC [Suspect]
     Indication: MENSTRUATION IRREGULAR
     Dosage: 1 TABLET DAILY PO
     Route: 048

REACTIONS (6)
  - ABDOMINAL PAIN [None]
  - ANAEMIA [None]
  - FOCAL NODULAR HYPERPLASIA [None]
  - HEPATIC ADENOMA [None]
  - HYPERCALCAEMIA [None]
  - HYPERTENSION [None]
